FAERS Safety Report 7289485-3 (Version None)
Quarter: 2011Q1

REPORT INFORMATION
  Report Type: 
  Country: None (occurrence: None)
  Receive Date: 20110211
  Receipt Date: 20110208
  Transmission Date: 20110831
  Serious: Yes (Hospitalization)
  Sender: FDA-Public Use
  Company Number: SE-MERCK-1102SWE00022

PATIENT
  Age: 86 Year
  Sex: Female

DRUGS (11)
  1. HYDROCHLOROTHIAZIDE AND VALSARTAN [Concomitant]
     Route: 065
  2. AMLODIPINE BESYLATE [Concomitant]
     Route: 065
  3. POTASSIUM CHLORIDE [Concomitant]
     Route: 065
  4. FUROSEMIDE [Concomitant]
     Route: 065
  5. ASPIRIN [Concomitant]
     Route: 065
  6. ACETAMINOPHEN [Concomitant]
     Route: 065
  7. CARVEDILOL [Concomitant]
     Route: 065
  8. ZOCOR [Suspect]
     Route: 048
     Dates: end: 20100928
  9. CITALOPRAM [Concomitant]
     Route: 065
  10. GLYBURIDE [Concomitant]
     Route: 065
  11. PREGABALIN [Concomitant]
     Route: 065

REACTIONS (5)
  - PAIN [None]
  - BLOOD CREATININE INCREASED [None]
  - PAIN IN EXTREMITY [None]
  - ABDOMINAL DISCOMFORT [None]
  - BLOOD CREATINE PHOSPHOKINASE INCREASED [None]
